FAERS Safety Report 24879210 (Version 2)
Quarter: 2025Q1

REPORT INFORMATION
  Report Type: Spontaneous
  Country: US (occurrence: US)
  Receive Date: 20250123
  Receipt Date: 20250204
  Transmission Date: 20250409
  Serious: Yes (Hospitalization, Other)
  Sender: ELI LILLY AND COMPANY
  Company Number: US-ELI_LILLY_AND_COMPANY-US202501008161

PATIENT

DRUGS (4)
  1. MOUNJARO [Suspect]
     Active Substance: TIRZEPATIDE
     Indication: Product used for unknown indication
     Route: 065
  2. MOUNJARO [Suspect]
     Active Substance: TIRZEPATIDE
     Indication: Product used for unknown indication
     Route: 065
  3. MOUNJARO [Suspect]
     Active Substance: TIRZEPATIDE
     Indication: Product used for unknown indication
     Route: 065
  4. MOUNJARO [Suspect]
     Active Substance: TIRZEPATIDE
     Indication: Product used for unknown indication
     Route: 065

REACTIONS (22)
  - Sepsis [Unknown]
  - Pancreatitis [Unknown]
  - Myocardial infarction [Unknown]
  - Gout [Unknown]
  - Chondrocalcinosis [Unknown]
  - Nasopharyngitis [Unknown]
  - Brain fog [Unknown]
  - Sensory processing sensitivity [Unknown]
  - Allodynia [Unknown]
  - Pain of skin [Unknown]
  - Mobility decreased [Unknown]
  - Depressed mood [Unknown]
  - Emotional disorder [Unknown]
  - Pain [Unknown]
  - Stress [Unknown]
  - Chills [Unknown]
  - Heart rate increased [Unknown]
  - Malaise [Unknown]
  - Abdominal pain [Unknown]
  - Vomiting [Unknown]
  - Nausea [Unknown]
  - Product tampering [Unknown]
